FAERS Safety Report 21607380 (Version 1)
Quarter: 2022Q4

REPORT INFORMATION
  Report Type: Spontaneous
  Country: FI (occurrence: FI)
  Receive Date: 20221117
  Receipt Date: 20221117
  Transmission Date: 20230112
  Serious: Yes (Hospitalization, Other)
  Sender: FDA-Public Use
  Company Number: FI-ASTELLAS-2022US040716

PATIENT
  Age: 76 Year
  Sex: Male

DRUGS (8)
  1. MIRABEGRON [Suspect]
     Active Substance: MIRABEGRON
     Indication: Pollakiuria
     Dosage: 25 MG, ONCE DAILY (AT 9 PM)
     Route: 065
     Dates: start: 20220915
  2. ENALAPRIL [Concomitant]
     Active Substance: ENALAPRIL
     Indication: Product used for unknown indication
     Dosage: 5 MG, 1 X 1
     Route: 065
  3. ATORVASTATIN [Concomitant]
     Active Substance: ATORVASTATIN
     Indication: Product used for unknown indication
     Dosage: 40 MG, 1 X 1
     Route: 065
  4. EZETIMIBE [Concomitant]
     Active Substance: EZETIMIBE
     Indication: Product used for unknown indication
     Dosage: 10 MG, 1 X 1
     Route: 065
  5. PANTOPRAZOLE SODIUM [Concomitant]
     Active Substance: PANTOPRAZOLE SODIUM
     Indication: Product used for unknown indication
     Dosage: 40 MG, ONCE DAILY (1 X 1, 7 AM IF NEEDED)
     Route: 065
  6. SINEMET [Concomitant]
     Active Substance: CARBIDOPA\LEVODOPA
     Indication: Product used for unknown indication
     Dosage: 12.5/50 MG, THRICE DAILY (1 X 3, 8 AM, 11, AM 4 PM)
     Route: 065
  7. CLOPIDOGREL [Concomitant]
     Active Substance: CLOPIDOGREL BISULFATE
     Indication: Product used for unknown indication
     Dosage: 75 MG, ONCE DAILY (1 X 1, 8 AM) (ALSO REPORED AS 75 G 1X1 AT 21)
     Route: 065
  8. CARBIDOPA\LEVODOPA [Concomitant]
     Active Substance: CARBIDOPA\LEVODOPA
     Indication: Product used for unknown indication
     Dosage: 50/200 MG, ONCE DAILY (1 X 1, 9 PM) (21 O^ CLOCK)
     Route: 065

REACTIONS (3)
  - Chest discomfort [Recovered/Resolved]
  - Dyspnoea at rest [Recovered/Resolved]
  - Hypertension [Recovered/Resolved]

NARRATIVE: CASE EVENT DATE: 20220901
